FAERS Safety Report 13998264 (Version 3)
Quarter: 2017Q4

REPORT INFORMATION
  Report Type: Report from Study
  Country: SE (occurrence: SE)
  Receive Date: 20170921
  Receipt Date: 20171222
  Transmission Date: 20180321
  Serious: Yes (Hospitalization)
  Sender: FDA-Public Use
  Company Number: SE-TESARO, INC-SE-2017TSO02834

PATIENT
  Age: 61 Year
  Sex: Female
  Weight: 57 kg

DRUGS (4)
  1. KALIUM CHLORID [Concomitant]
     Indication: CONSTIPATION
     Dosage: 1 SACHET, QD
     Route: 048
     Dates: start: 2012
  2. MACROGOL [Concomitant]
     Active Substance: POLYETHYLENE GLYCOLS
     Indication: CONSTIPATION
     Dosage: 1 SACHET, QD
     Route: 048
     Dates: start: 2012
  3. NIRAPARIB [Suspect]
     Active Substance: NIRAPARIB
     Indication: NEOPLASM MALIGNANT
     Dosage: 100 MG, QD
     Route: 048
     Dates: start: 20170707, end: 20170911
  4. BEVACIZUMAB. [Suspect]
     Active Substance: BEVACIZUMAB
     Indication: NEOPLASM MALIGNANT
     Dosage: 870 MG, Q3W
     Route: 042
     Dates: start: 20170707, end: 20170906

REACTIONS (1)
  - Subileus [Recovered/Resolved]

NARRATIVE: CASE EVENT DATE: 20170911
